FAERS Safety Report 8839549 (Version 1)
Quarter: 2012Q4

REPORT INFORMATION
  Report Type: 
  Country: CA (occurrence: CA)
  Receive Date: 20121015
  Receipt Date: 20121015
  Transmission Date: 20130627
  Serious: Yes (Other)
  Sender: FDA-Public Use
  Company Number: PHHY2011CA101115

PATIENT
  Age: 95 Year
  Sex: Female

DRUGS (1)
  1. ACLASTA [Suspect]
     Indication: OSTEOPOROSIS
     Dosage: UNK UKN, UNK
     Route: 042
     Dates: start: 20111111

REACTIONS (6)
  - Osteoarthritis [Unknown]
  - Concomitant disease aggravated [Unknown]
  - Memory impairment [Unknown]
  - Poor venous access [Unknown]
  - Infusion site extravasation [Unknown]
  - Incorrect dose administered [Unknown]
